FAERS Safety Report 7222123-4 (Version None)
Quarter: 2011Q1

REPORT INFORMATION
  Report Type: 
  Country: None (occurrence: None)
  Receive Date: 20110112
  Receipt Date: 20110103
  Transmission Date: 20110831
  Serious: Yes (Hospitalization)
  Sender: FDA-Public Use
  Company Number: FR-ASTRAZENECA-2011SE01008

PATIENT
  Sex: Male

DRUGS (11)
  1. XANAX [Concomitant]
     Dates: start: 20101102, end: 20101105
  2. MOPRAL [Suspect]
     Route: 048
     Dates: start: 20101028, end: 20101108
  3. ARIXTRA [Concomitant]
     Dates: start: 20101107
  4. SPIRONOLACTONE [Suspect]
     Route: 048
     Dates: start: 20101028, end: 20101108
  5. DIAMICRON [Concomitant]
     Dates: start: 20101028
  6. PRAVASTATIN [Concomitant]
     Dates: start: 20101028
  7. DOPLIPRANE [Suspect]
     Route: 048
     Dates: start: 20101028, end: 20101108
  8. BURINEX [Suspect]
     Route: 048
     Dates: start: 20101028, end: 20101108
  9. LOVENOX [Suspect]
     Route: 058
     Dates: start: 20101028, end: 20101107
  10. NOVORAPID [Suspect]
     Route: 058
     Dates: start: 20101028, end: 20101108
  11. TOPALGIC [Concomitant]
     Dates: start: 20101029, end: 20101104

REACTIONS (5)
  - CREATININE RENAL CLEARANCE DECREASED [None]
  - THROMBOCYTOPENIA [None]
  - EOSINOPHILIA [None]
  - RASH MACULO-PAPULAR [None]
  - CYTOLYTIC HEPATITIS [None]
